FAERS Safety Report 7455339-2 (Version None)
Quarter: 2011Q2

REPORT INFORMATION
  Report Type: 
  Country: None (occurrence: None)
  Receive Date: 20110503
  Receipt Date: 20110428
  Transmission Date: 20111010
  Serious: Yes (Hospitalization)
  Sender: FDA-Public Use
  Company Number: US-B.I. PHARMACEUTICALS,INC./RIDGEFIELD-2011-BP-08947BP

PATIENT
  Age: 46 Year
  Sex: Male

DRUGS (5)
  1. METOPROLOL SUCCINATE [Concomitant]
     Dosage: 25 MG
  2. ASPIRIN [Suspect]
     Dosage: 81 MG
  3. SIMVASTATIN [Concomitant]
     Dosage: 40 MG
  4. MULTAQ [Concomitant]
     Dosage: 800 MG
  5. PRADAXA [Suspect]
     Indication: ATRIAL FIBRILLATION
     Dosage: 300 MG
     Dates: start: 20110203

REACTIONS (5)
  - DIVERTICULUM [None]
  - GASTROINTESTINAL HAEMORRHAGE [None]
  - DIVERTICULUM INTESTINAL HAEMORRHAGIC [None]
  - MELAENA [None]
  - RECTAL HAEMORRHAGE [None]
